FAERS Safety Report 25664185 (Version 2)
Quarter: 2025Q3

REPORT INFORMATION
  Report Type: Report from Study
  Country: US (occurrence: US)
  Receive Date: 20250811
  Receipt Date: 20250915
  Transmission Date: 20251021
  Serious: No
  Sender: SUNOVION
  Company Number: US-SUMITOMO PHARMA SWITZERLAND GMBH-2024SPA001391

PATIENT
  Age: 64 Year
  Sex: Male

DRUGS (2)
  1. ORGOVYX [Suspect]
     Active Substance: RELUGOLIX
     Indication: Prostate cancer
     Route: 048
  2. ORGOVYX [Suspect]
     Active Substance: RELUGOLIX
     Dosage: 120 MG, QD
     Route: 048
     Dates: start: 20231027

REACTIONS (9)
  - Tooth injury [Unknown]
  - Gingival injury [Unknown]
  - Abdominal distension [Unknown]
  - Muscle spasms [Unknown]
  - Pain [Unknown]
  - Tooth disorder [Unknown]
  - Anxiety [Unknown]
  - Hot flush [Unknown]
  - Musculoskeletal stiffness [Unknown]
